FAERS Safety Report 8178865-X (Version None)
Quarter: 2012Q1

REPORT INFORMATION
  Report Type: 
  Country: None (occurrence: None)
  Receive Date: 20120302
  Receipt Date: 20120227
  Transmission Date: 20120608
  Serious: Yes (Other)
  Sender: FDA-Public Use
  Company Number: US-BIOGENIDEC-2012BI000309

PATIENT
  Age: 60 Year
  Sex: Male

DRUGS (2)
  1. TYSABRI [Suspect]
     Indication: MULTIPLE SCLEROSIS
     Route: 042
     Dates: start: 20080623
  2. SAW PALMETTO [Concomitant]
     Indication: PROSTATOMEGALY
     Dates: start: 20110701, end: 20111101

REACTIONS (2)
  - PROSTATE CANCER STAGE I [None]
  - COGNITIVE DISORDER [None]
